FAERS Safety Report 14033070 (Version 1)
Quarter: 2017Q4

REPORT INFORMATION
  Report Type: Spontaneous
  Country: US (occurrence: US)
  Receive Date: 20171003
  Receipt Date: 20171003
  Transmission Date: 20180321
  Serious: No
  Sender: FDA-Public Use
  Company Number: US-PFIZER INC-2017417345

PATIENT
  Age: 69 Year
  Sex: Female
  Weight: 98.43 kg

DRUGS (2)
  1. EUCRISA [Suspect]
     Active Substance: CRISABOROLE
     Indication: ECZEMA
  2. EUCRISA [Suspect]
     Active Substance: CRISABOROLE
     Indication: LICHEN SCLEROSUS
     Dosage: A THIN LAYER APPLIED TO THE VULVA AREA TWICE A DAY FOR 11 DAYS
     Dates: start: 20170823, end: 20170903

REACTIONS (4)
  - Drug administered at inappropriate site [Unknown]
  - Feeling abnormal [Unknown]
  - Product use in unapproved indication [Unknown]
  - Burning sensation [Unknown]

NARRATIVE: CASE EVENT DATE: 20170823
